FAERS Safety Report 6786777-9 (Version None)
Quarter: 2010Q2

REPORT INFORMATION
  Report Type: 
  Country: None (occurrence: None)
  Receive Date: 20100623
  Receipt Date: 20100615
  Transmission Date: 20101027
  Serious: Yes (Other)
  Sender: FDA-Public Use
  Company Number: US-SANOFI-AVENTIS-2010SA030712

PATIENT
  Age: 81 Year
  Sex: Female
  Weight: 63.5 kg

DRUGS (3)
  1. APIDRA [Suspect]
     Indication: TYPE 2 DIABETES MELLITUS
     Dosage: DOSE:10 UNIT(S)
     Route: 058
  2. OPTICLICK [Suspect]
     Indication: TYPE 2 DIABETES MELLITUS
  3. INSULIN DETEMIR [Suspect]
     Dosage: DOSE:28 UNIT(S)
     Route: 065

REACTIONS (3)
  - BLOOD GLUCOSE INCREASED [None]
  - CORNEAL TRANSPLANT [None]
  - DRUG DOSE OMISSION [None]
